FAERS Safety Report 6398748-5 (Version None)
Quarter: 2009Q4

REPORT INFORMATION
  Report Type: 
  Country: None (occurrence: None)
  Receive Date: 20091007
  Receipt Date: 20090925
  Transmission Date: 20100525
  Serious: Yes (Other)
  Sender: FDA-Public Use
  Company Number: ENT 2009-0173

PATIENT
  Age: 65 Year
  Sex: Male

DRUGS (11)
  1. COMTAN [Suspect]
     Dosage: 300 MG ORAL
     Route: 048
     Dates: start: 20080426, end: 20080719
  2. CARBIDOPA AND LEVODOPA [Concomitant]
  3. SYMMETREL [Concomitant]
  4. SIFROL [Concomitant]
  5. ASPIRIN [Concomitant]
  6. PERSANTINE [Concomitant]
  7. HALCION [Concomitant]
  8. GASTROM [Concomitant]
  9. MICARDIS [Concomitant]
  10. FLUITRAN [Concomitant]
  11. EPERISONE HYDROCHLORIDE [Concomitant]

REACTIONS (1)
  - HAEMATURIA [None]
